FAERS Safety Report 20848456 (Version 1)
Quarter: 2022Q2

REPORT INFORMATION
  Report Type: Spontaneous
  Country: TW (occurrence: TW)
  Receive Date: 20220519
  Receipt Date: 20220519
  Transmission Date: 20220721
  Serious: Yes (Other)
  Sender: FDA-Public Use
  Company Number: None

PATIENT
  Sex: Male

DRUGS (10)
  1. DOCETAXEL [Suspect]
     Active Substance: DOCETAXEL
     Indication: Oesophageal squamous cell carcinoma
     Dosage: UNK
     Route: 065
     Dates: start: 201612, end: 201703
  2. BEVACIZUMAB [Suspect]
     Active Substance: BEVACIZUMAB
     Indication: Metastases to skin
     Dosage: UNK
     Route: 065
  3. MITOMYCIN [Suspect]
     Active Substance: MITOMYCIN
     Indication: Metastases to skin
     Dosage: UNK
     Route: 065
  4. CYCLOPHOSPHAMIDE [Suspect]
     Active Substance: CYCLOPHOSPHAMIDE
     Indication: Metastases to skin
     Dosage: UNK
     Route: 065
  5. CISPLATIN [Suspect]
     Active Substance: CISPLATIN
     Indication: Oesophageal squamous cell carcinoma
     Dosage: UNK
     Route: 065
     Dates: start: 201612, end: 201707
  6. FLUOROURACIL [Suspect]
     Active Substance: FLUOROURACIL
     Indication: Oesophageal squamous cell carcinoma
     Dosage: UNK
     Route: 065
     Dates: start: 201612, end: 201705
  7. CETUXIMAB [Suspect]
     Active Substance: CETUXIMAB
     Indication: Oesophageal squamous cell carcinoma
     Dosage: UNK
     Route: 065
     Dates: start: 201706, end: 201707
  8. ETOPOSIDE [Suspect]
     Active Substance: ETOPOSIDE
     Indication: Oesophageal squamous cell carcinoma
     Dosage: UNK
     Route: 065
     Dates: start: 201706, end: 201707
  9. METHOTREXATE [Suspect]
     Active Substance: METHOTREXATE
     Indication: Metastases to skin
     Dosage: UNK
     Route: 065
     Dates: start: 201709, end: 201710
  10. PEMBROLIZUMAB [Suspect]
     Active Substance: PEMBROLIZUMAB
     Indication: Metastases to skin
     Dosage: UNK
     Route: 065
     Dates: start: 201709, end: 201710

REACTIONS (1)
  - Drug ineffective [Unknown]
